FAERS Safety Report 7227443-5 (Version None)
Quarter: 2011Q1

REPORT INFORMATION
  Report Type: 
  Country: None (occurrence: None)
  Receive Date: 20110111
  Receipt Date: 20110111
  Transmission Date: 20110831
  Serious: Yes (Hospitalization)
  Sender: FDA-Public Use
  Company Number: None

PATIENT
  Age: 48 Year
  Sex: Male
  Weight: 104 kg

DRUGS (11)
  1. MULTI-VITAMIN [Concomitant]
  2. CETUXIMAB [Suspect]
     Indication: HEAD AND NECK CANCER
     Dosage: 400 MG/M2, LOADING, IV ; 250 MG/M2, IV
     Route: 042
     Dates: start: 20101201
  3. CETUXIMAB [Suspect]
     Indication: HEAD AND NECK CANCER
     Dosage: 400 MG/M2, LOADING, IV ; 250 MG/M2, IV
     Route: 042
     Dates: start: 20101208, end: 20110105
  4. MINOCYCLINE HCL [Concomitant]
  5. PREDNISONE [Concomitant]
  6. HYDROXYZINE [Concomitant]
  7. OMEPRAZOLE [Concomitant]
  8. LISINOPRIL [Concomitant]
  9. AMLODIPINE [Concomitant]
  10. CLONAZEPAM [Concomitant]
  11. REMERON [Concomitant]

REACTIONS (3)
  - CHEST PAIN [None]
  - OEDEMA PERIPHERAL [None]
  - ELECTROCARDIOGRAM ABNORMAL [None]
